FAERS Safety Report 6627849-9 (Version None)
Quarter: 2010Q1

REPORT INFORMATION
  Report Type: 
  Country: None (occurrence: None)
  Receive Date: 20100311
  Receipt Date: 20090310
  Transmission Date: 20100710
  Serious: No
  Sender: FDA-Public Use
  Company Number: A0764721A

PATIENT
  Age: 63 Year
  Sex: Male

DRUGS (2)
  1. NICORETTE [Suspect]
     Indication: SMOKING CESSATION THERAPY
  2. NICORETTE [Suspect]
     Indication: SMOKING CESSATION THERAPY

REACTIONS (5)
  - DRUG ADMINISTRATION ERROR [None]
  - GINGIVAL PAIN [None]
  - INTENTIONAL DRUG MISUSE [None]
  - ORAL DISCOMFORT [None]
  - ORAL PAIN [None]
